FAERS Safety Report 6865829-9 (Version None)
Quarter: 2010Q3

REPORT INFORMATION
  Report Type: 
  Country: None (occurrence: None)
  Receive Date: 20100720
  Receipt Date: 20100708
  Transmission Date: 20110219
  Serious: Yes (Other)
  Sender: FDA-Public Use
  Company Number: 015268

PATIENT
  Sex: Male

DRUGS (2)
  1. VIMPAT [Suspect]
     Dosage: 50 MG BID, 50MG AM AND 50 MG PM
  2. LAMICTAL [Concomitant]

REACTIONS (3)
  - BRAIN INJURY [None]
  - DEPRESSION [None]
  - FALL [None]
